FAERS Safety Report 9742811 (Version 2)
Quarter: 2013Q4

REPORT INFORMATION
  Report Type: Spontaneous
  Country: FR (occurrence: FR)
  Receive Date: 20131210
  Receipt Date: 20131223
  Transmission Date: 20140711
  Serious: Yes (Other)
  Sender: FDA-Public Use
  Company Number: FR-PFIZER INC-2013345215

PATIENT
  Age: 71 Year
  Sex: Female

DRUGS (9)
  1. ANSATIPINE [Suspect]
     Indication: MYCOBACTERIUM AVIUM COMPLEX INFECTION
     Dosage: UNK
  2. ZECLAR [Concomitant]
     Dosage: UNK
  3. DEXAMBUTOL [Concomitant]
     Dosage: UNK
  4. DOLIPRANE [Concomitant]
     Indication: INFLUENZA
     Dosage: UNK
  5. TAREG [Concomitant]
     Dosage: UNK
  6. TRUSOPT [Concomitant]
     Dosage: 1 GTT, 3X/DAY
  7. TRUSOPT [Concomitant]
     Dosage: 1 GTT, 3X/DAY
     Dates: start: 20130923
  8. TRAVATAN [Concomitant]
     Dosage: 1 GTT, DAILY, LEFT EYE
     Dates: start: 20130923
  9. AUGMENTIN [Concomitant]
     Indication: INFLUENZA
     Dosage: UNK

REACTIONS (4)
  - Blindness [Recovering/Resolving]
  - Neuropathy peripheral [Recovering/Resolving]
  - Visual field defect [Recovering/Resolving]
  - Vision blurred [Recovering/Resolving]
